FAERS Safety Report 9097433 (Version 3)
Quarter: 2013Q2

REPORT INFORMATION
  Report Type: Spontaneous
  Country: US (occurrence: US)
  Receive Date: 20130212
  Receipt Date: 20130528
  Transmission Date: 20140414
  Serious: Yes (Hospitalization)
  Sender: FDA-Public Use
  Company Number: US-ELI_LILLY_AND_COMPANY-US201210005652

PATIENT
  Sex: Female
  Weight: 45.35 kg

DRUGS (7)
  1. FORTEO [Suspect]
     Indication: OSTEOPOROSIS
     Dosage: 20 UG, QD
     Dates: start: 20120816, end: 20130131
  2. COUMADIN [Concomitant]
  3. COREG [Concomitant]
  4. SOTALOL [Concomitant]
  5. VITAMIN D [Concomitant]
  6. WELCHOL [Concomitant]
  7. FLORINEF [Concomitant]

REACTIONS (3)
  - Anticoagulation drug level above therapeutic [Recovered/Resolved]
  - Rib fracture [Recovered/Resolved]
  - Pain [Unknown]
